FAERS Safety Report 9188310 (Version 1)
Quarter: 2013Q1

REPORT INFORMATION
  Report Type: Spontaneous
  Country: US (occurrence: US)
  Receive Date: 20130325
  Receipt Date: 20130325
  Transmission Date: 20140127
  Serious: No
  Sender: FDA-Public Use
  Company Number: US-MYLANLABS-2012S1016029

PATIENT
  Age: 75 Year
  Sex: Female
  Weight: 54.89 kg

DRUGS (22)
  1. FENTANYL TRANSDERMAL SYSTEM [Suspect]
     Indication: CANCER PAIN
     Dosage: Q72HRS
     Route: 062
  2. FENTANYL TRANSDERMAL SYSTEM [Suspect]
     Indication: CANCER PAIN
     Dosage: Q72HR
     Route: 062
     Dates: end: 20120717
  3. FENTANYL TRANSDERMAL SYSTEM [Suspect]
     Indication: CANCER PAIN
     Dosage: Q72HR
     Route: 062
     Dates: start: 20120717
  4. VICODIN [Concomitant]
     Indication: PAIN
     Dosage: 5/500MG
  5. COMPAZINE [Concomitant]
     Indication: NAUSEA
  6. IMITREX [Concomitant]
     Indication: MIGRAINE
     Route: 048
  7. SYNTHYROID [Concomitant]
     Indication: HYPOTHYROIDISM
  8. INDERAL [Concomitant]
     Indication: MIGRAINE
  9. ZOLOFT [Concomitant]
     Indication: DEPRESSION
  10. TRAZODONE [Concomitant]
     Indication: INSOMNIA
  11. MELATONIN [Concomitant]
     Indication: INSOMNIA
  12. NEXIUM [Concomitant]
     Indication: DYSPEPSIA
  13. COMBIVENT [Concomitant]
     Indication: CHRONIC OBSTRUCTIVE PULMONARY DISEASE
  14. ASA [Concomitant]
     Indication: PROPHYLAXIS
  15. ALEVE [Concomitant]
     Indication: PAIN
  16. BENADRYL [Concomitant]
  17. IRON [Concomitant]
  18. MVI [Concomitant]
     Dosage: ONE DAILY
  19. VITAMIN D3 [Concomitant]
     Dosage: ONE DAILY
  20. FISH OIL [Concomitant]
     Dosage: ONE DAILY
  21. CANNABIS SATIVA OIL [Concomitant]
  22. COCONUT OIL [Concomitant]

REACTIONS (3)
  - Drug effect decreased [Not Recovered/Not Resolved]
  - Pain [Not Recovered/Not Resolved]
  - Muscle spasms [Not Recovered/Not Resolved]
